FAERS Safety Report 6054490-1 (Version None)
Quarter: 2009Q1

REPORT INFORMATION
  Report Type: 
  Country: None (occurrence: None)
  Receive Date: 20090127
  Receipt Date: 20090115
  Transmission Date: 20090719
  Serious: Yes (Other)
  Sender: FDA-Public Use
  Company Number: PHHY2008DE30234

PATIENT
  Sex: Female

DRUGS (7)
  1. ESTRAGEST TTS [Suspect]
     Indication: MENOPAUSAL SYMPTOMS
     Dosage: UNK
     Route: 062
     Dates: start: 20080101
  2. ESTRAGEST TTS [Suspect]
     Indication: INSOMNIA
  3. MERIGEST [Suspect]
     Indication: MENOPAUSAL SYMPTOMS
     Dosage: UNK
     Route: 048
     Dates: start: 20030101, end: 20080101
  4. ZYPREXA [Concomitant]
     Indication: DEPRESSION
     Dosage: 2.5 MG/DAY
     Route: 048
     Dates: start: 20010101, end: 20080101
  5. ZOPICLON [Concomitant]
  6. OPIPRAMOL [Concomitant]
  7. ST. JOHN'S WORT [Concomitant]

REACTIONS (9)
  - APPLICATION SITE PRURITUS [None]
  - APPLICATION SITE RASH [None]
  - BURNING SENSATION [None]
  - CYST [None]
  - DRUG INEFFECTIVE [None]
  - HYPERKERATOSIS [None]
  - INFLAMMATION [None]
  - OEDEMA PERIPHERAL [None]
  - WEIGHT INCREASED [None]
